FAERS Safety Report 9822168 (Version 1)
Quarter: 2014Q1

REPORT INFORMATION
  Report Type: Spontaneous
  Country: FR (occurrence: FR)
  Receive Date: 20140116
  Receipt Date: 20140116
  Transmission Date: 20141002
  Serious: Yes (Death)
  Sender: FDA-Public Use
  Company Number: FR-SA-2014SA002371

PATIENT
  Age: 67 Year
  Sex: Female
  Weight: 68 kg

DRUGS (3)
  1. TAXOTERE [Suspect]
     Indication: MASTECTOMY
     Route: 042
     Dates: start: 20130905, end: 20130905
  2. ENDOXAN [Suspect]
     Indication: MASTECTOMY
     Route: 042
     Dates: start: 20130905, end: 20130905
  3. HERCEPTIN [Suspect]
     Indication: MASTECTOMY
     Dosage: STRENGTH: 150 MG
     Route: 042
     Dates: start: 20130905, end: 20130905

REACTIONS (2)
  - Colon gangrene [Fatal]
  - Clostridial infection [Fatal]
